FAERS Safety Report 11702302 (Version 1)
Quarter: 2015Q4

REPORT INFORMATION
  Report Type: Spontaneous
  Country: US (occurrence: None)
  Receive Date: 20151105
  Receipt Date: 20151105
  Transmission Date: 20160304
  Serious: Yes (Other)
  Sender: FDA-Public Use
  Company Number: US-MDT-ADR-2015-02087

PATIENT
  Age: 45 Year
  Sex: Male

DRUGS (1)
  1. BACLOFEN INTRATHECAL 2,000MCG/ML [Suspect]
     Active Substance: BACLOFEN
     Indication: MUSCLE SPASTICITY
     Dosage: 798.9MCG/DAY

REACTIONS (9)
  - Blood pressure increased [None]
  - Anxiety [None]
  - Bladder spasm [None]
  - Cognitive disorder [None]
  - Pruritus [None]
  - Decubitus ulcer [None]
  - Hyperhidrosis [None]
  - Muscle spasms [None]
  - Pyrexia [None]
